FAERS Safety Report 6356369-4 (Version None)
Quarter: 2009Q3

REPORT INFORMATION
  Report Type: 
  Country: None (occurrence: None)
  Receive Date: 20090911
  Receipt Date: 20090911
  Transmission Date: 20100115
  Serious: No
  Sender: FDA-Public Use
  Company Number: None

PATIENT
  Age: 46 Year
  Sex: Male
  Weight: 86.1834 kg

DRUGS (1)
  1. ZICAM GEL [Suspect]
     Indication: NASOPHARYNGITIS
     Dosage: Q-TIP EVERY 4 HOURS
     Dates: start: 20051110, end: 20090910

REACTIONS (3)
  - BURNING SENSATION [None]
  - MUSCLE DISORDER [None]
  - MUSCLE TIGHTNESS [None]
